FAERS Safety Report 24218460 (Version 1)
Quarter: 2024Q3

REPORT INFORMATION
  Report Type: Spontaneous
  Country: CH (occurrence: CH)
  Receive Date: 20240816
  Receipt Date: 20240816
  Transmission Date: 20241017
  Serious: Yes (Life-Threatening, Hospitalization)
  Sender: JOHNSON AND JOHNSON
  Company Number: None

PATIENT
  Age: 62 Year
  Sex: Male
  Weight: 73 kg

DRUGS (4)
  1. DARZALEX [Suspect]
     Active Substance: DARATUMUMAB
     Indication: Plasma cell myeloma
     Route: 058
     Dates: start: 202202, end: 20240611
  2. POMALIDOMIDE [Suspect]
     Active Substance: POMALIDOMIDE
     Indication: Plasma cell myeloma
     Dosage: CYCLICAL, 4 MG 1X/DAY CYCLIC (3 WEEKS OUT OF 4), WITH DOSE REDUCTION (BECAUSE OF NEUTROPENIA) SINCE
     Route: 048
     Dates: start: 202202, end: 20240611
  3. DEXAMETHASONE [Suspect]
     Active Substance: DEXAMETHASONE
     Indication: Plasma cell myeloma
     Dosage: DEXAMETHASONE (SPECIALTY NOT SPECIFIED): 20 MG ON D1-D2 OF DARATUMUMAB WEEKS OF ADMINISTRATION AND 1
     Route: 048
     Dates: start: 20220211, end: 20240611
  4. HUMAN IMMUNOGLOBULIN G [Concomitant]
     Active Substance: HUMAN IMMUNOGLOBULIN G
     Indication: Hypogammaglobulinaemia
     Dosage: APPROX. 1X/MONTH
     Dates: start: 202208

REACTIONS (1)
  - Progressive multifocal leukoencephalopathy [Not Recovered/Not Resolved]

NARRATIVE: CASE EVENT DATE: 20240509
